FAERS Safety Report 10006504 (Version 3)
Quarter: 2014Q2

REPORT INFORMATION
  Report Type: Spontaneous
  Country: US (occurrence: US)
  Receive Date: 20140313
  Receipt Date: 20140522
  Transmission Date: 20141212
  Serious: Yes (Other)
  Sender: FDA-Public Use
  Company Number: US-TEVA-468225USA

PATIENT
  Sex: Female

DRUGS (1)
  1. COPAXONE [Suspect]
     Indication: MULTIPLE SCLEROSIS
     Dates: start: 20090102

REACTIONS (6)
  - Sjogren^s syndrome [Unknown]
  - Arthritis [Unknown]
  - Joint swelling [Unknown]
  - Arthritis [Unknown]
  - Pain in extremity [Unknown]
  - Oropharyngeal pain [Unknown]
